FAERS Safety Report 8531983 (Version 2)
Quarter: 2012Q4

REPORT INFORMATION
  Report Type: 
  Country: US (occurrence: US)
  Receive Date: 20120426
  Receipt Date: 20121213
  Transmission Date: 20130627
  Serious: Yes (Death)
  Sender: FDA-Public Use
  Company Number: US-BAYER-2010-008387

PATIENT
  Sex: Male

DRUGS (5)
  1. NEXAVAR [Suspect]
     Indication: MALIGNANT NEOPLASM OF LIVER, PRIMARY
     Dosage: 400 mg, BID
     Route: 048
     Dates: start: 20101201, end: 20101223
  2. TRAMADOL [Concomitant]
     Dosage: UNK
     Dates: start: 20101202
  3. MEGACE [Concomitant]
     Dosage: UNK
     Dates: start: 20101202
  4. IRON [FERROUS SULFATE] [Concomitant]
     Dosage: UNK
     Dates: start: 20101202
  5. MULTI-VIT [Concomitant]
     Dosage: UNK
     Dates: start: 20101202

REACTIONS (1)
  - Hepatic cancer [Fatal]
